FAERS Safety Report 4615496-X (Version None)
Quarter: 2005Q1

REPORT INFORMATION
  Report Type: 
  Country: None (occurrence: None)
  Receive Date: 20050317
  Receipt Date: 20050304
  Transmission Date: 20050727
  Serious: Yes (Death, Hospitalization)
  Sender: FDA-Public Use
  Company Number: 2005040905

PATIENT
  Age: 84 Year
  Sex: Female

DRUGS (7)
  1. CELEBRA (CELECOXIB) [Suspect]
     Indication: PAIN
     Dosage: 200 MG (200 MG, 1 IN 1 D), ORAL
     Route: 048
     Dates: start: 20030828, end: 20050101
  2. FUROSEMIDE [Concomitant]
  3. METOPROLOL SUCCINATE [Concomitant]
  4. WARFARIN SODIUM [Concomitant]
  5. POTASSIUM CHLORIDE [Concomitant]
  6. AMITRIPTYLINE HYDROCHLORIDE [Concomitant]
  7. PHENOXYMETHYL PENICILLIN [Concomitant]

REACTIONS (4)
  - BODY TEMPERATURE DECREASED [None]
  - CEREBRAL INFARCTION [None]
  - HYPERTENSION [None]
  - INTERNATIONAL NORMALISED RATIO DECREASED [None]
